FAERS Safety Report 8949820 (Version 1)
Quarter: 2012Q4

REPORT INFORMATION
  Report Type: 
  Country: IT (occurrence: IT)
  Receive Date: 20121206
  Receipt Date: 20121206
  Transmission Date: 20130627
  Serious: Yes (Other)
  Sender: FDA-Public Use
  Company Number: IT-TEVA-372929ISR

PATIENT
  Age: 67 Year
  Sex: Male

DRUGS (1)
  1. OXALIPLATINO [Suspect]
     Indication: MALIGNANT NEOPLASM OF AMPULLA OF VATER
     Dosage: 150 Milligram Daily;
     Route: 042
     Dates: start: 20120725, end: 20121031

REACTIONS (5)
  - Erythema [Recovered/Resolved]
  - Malaise [Recovered/Resolved]
  - Nausea [Recovered/Resolved]
  - Syncope [Recovered/Resolved]
  - Clonus [Recovered/Resolved]
